FAERS Safety Report 4329862-3 (Version None)
Quarter: 2004Q1

REPORT INFORMATION
  Report Type: 
  Country: None (occurrence: None)
  Receive Date: 20040329
  Receipt Date: 20040322
  Transmission Date: 20041129
  Serious: Yes (Hospitalization)
  Sender: FDA-Public Use
  Company Number: 2004202652PL

PATIENT
  Age: 16 Year
  Sex: Male
  Weight: 42 kg

DRUGS (3)
  1. GENOTROPIN [Suspect]
     Dosage: 0.12 MG/KG, QD, SUBCUTANEOUS
     Route: 058
     Dates: start: 20040210
  2. SALMETEROL (SALMETEROL) [Concomitant]
  3. FLUTICASONE PROPIONATE [Concomitant]

REACTIONS (6)
  - ABDOMINAL PAIN [None]
  - ANAPHYLACTIC SHOCK [None]
  - BRADYCARDIA [None]
  - DYSPNOEA [None]
  - FEELING ABNORMAL [None]
  - HEADACHE [None]
